FAERS Safety Report 6219181-2 (Version None)
Quarter: 2009Q2

REPORT INFORMATION
  Report Type: 
  Country: None (occurrence: None)
  Receive Date: 20090609
  Receipt Date: 20090526
  Transmission Date: 20091009
  Serious: Yes (Other)
  Sender: FDA-Public Use
  Company Number: IT-RANBAXY-2009RR-24577

PATIENT
  Age: 5 Year
  Sex: Female

DRUGS (3)
  1. IBUPROFEN [Suspect]
     Indication: FEBRILE INFECTION
     Dosage: 5 MG/KG, TID
     Route: 048
  2. PARACETAMOL [Suspect]
     Indication: FEBRILE INFECTION
     Dosage: 11 MG/KG, UNK
     Route: 048
  3. DIAZEPAM [Concomitant]
     Indication: CONVULSION

REACTIONS (2)
  - HEPATITIS CHOLESTATIC [None]
  - RENAL FAILURE ACUTE [None]
